FAERS Safety Report 21696555 (Version 1)
Quarter: 2022Q4

REPORT INFORMATION
  Report Type: Other
  Country: AU (occurrence: AU)
  Receive Date: 20221207
  Receipt Date: 20221207
  Transmission Date: 20230113
  Serious: Yes (Other)
  Sender: FDA-Public Use
  Company Number: AU-CELLTRION INC.-2022AU020346

PATIENT

DRUGS (4)
  1. RITUXIMAB [Suspect]
     Active Substance: RITUXIMAB
     Indication: Product used for unknown indication
  2. ATORVASTATIN CALCIUM PROPYLENE GLYCOL SOLVATE [Concomitant]
     Active Substance: ATORVASTATIN CALCIUM PROPYLENE GLYCOL SOLVATE
  3. BACTRIM DS [Concomitant]
     Active Substance: SULFAMETHOXAZOLE\TRIMETHOPRIM
  4. ACETAMINOPHEN [Concomitant]
     Active Substance: ACETAMINOPHEN

REACTIONS (3)
  - Thrombocytopenia [Unknown]
  - Hypertransaminasaemia [Unknown]
  - Liver function test abnormal [Unknown]
